FAERS Safety Report 18189470 (Version 3)
Quarter: 2021Q2

REPORT INFORMATION
  Report Type: Report from Study
  Country: CA (occurrence: CA)
  Receive Date: 20200824
  Receipt Date: 20210416
  Transmission Date: 20210717
  Serious: Yes (Life-Threatening, Hospitalization)
  Sender: FDA-Public Use
  Company Number: CA-PFIZER INC-2020325102

PATIENT
  Age: 4 Decade
  Sex: Male
  Weight: 72 kg

DRUGS (7)
  1. METOPROLOL. [Suspect]
     Active Substance: METOPROLOL
     Dosage: 25 MG, Q12H
  2. STELARA [Suspect]
     Active Substance: USTEKINUMAB
     Indication: PSORIASIS
     Dosage: 90 MG, EVERY EIGHT WEEKS
     Route: 058
     Dates: start: 20161202, end: 20190409
  3. STELARA [Suspect]
     Active Substance: USTEKINUMAB
     Indication: CROHN^S DISEASE
  4. ASA [Concomitant]
     Active Substance: ASPIRIN
     Dosage: 81 MG, QD
     Route: 065
  5. RAMIPRIL. [Suspect]
     Active Substance: RAMIPRIL
     Dosage: 2.5 MG, QD
     Route: 048
  6. TICAGRELOR. [Suspect]
     Active Substance: TICAGRELOR
     Dosage: 90 MG, Q12H
     Route: 048
     Dates: start: 20181121
  7. ATORVASTATIN [Concomitant]
     Active Substance: ATORVASTATIN
     Dosage: 80 MG
     Route: 065

REACTIONS (16)
  - Dyspnoea [Unknown]
  - Pyrexia [Not Recovered/Not Resolved]
  - Dyspepsia [Unknown]
  - Lymphadenopathy [Unknown]
  - Lymphadenopathy [Unknown]
  - Visual impairment [Unknown]
  - Headache [Unknown]
  - Hypotension [Unknown]
  - Oropharyngeal pain [Not Recovered/Not Resolved]
  - Scar pain [Not Recovered/Not Resolved]
  - Myocardial infarction [Recovered/Resolved]
  - Rash erythematous [Unknown]
  - Constipation [Unknown]
  - Bronchitis [Not Recovered/Not Resolved]
  - Chest pain [Unknown]
  - Dizziness [Unknown]

NARRATIVE: CASE EVENT DATE: 2017
